FAERS Safety Report 18500364 (Version 2)
Quarter: 2022Q4

REPORT INFORMATION
  Report Type: Spontaneous
  Country: DE (occurrence: DE)
  Receive Date: 20201113
  Receipt Date: 20221019
  Transmission Date: 20230113
  Serious: Yes (Hospitalization)
  Sender: FDA-Public Use
  Company Number: DE-NOVARTISPH-NVSC2020DE298565

PATIENT
  Age: 68 Year
  Sex: Male
  Weight: 99 kg

DRUGS (9)
  1. ALLOPURINOL [Suspect]
     Active Substance: ALLOPURINOL
     Indication: Product used for unknown indication
     Dosage: 100 MG, QD (1-0-0-0)
     Route: 048
  2. RAMIPRIL [Suspect]
     Active Substance: RAMIPRIL
     Indication: Product used for unknown indication
     Dosage: 5 MG, QD (1-0-0-0)
     Route: 048
  3. ATORVASTATIN [Suspect]
     Active Substance: ATORVASTATIN
     Indication: Product used for unknown indication
     Dosage: 80 MG, QD (0-0-1-0)
     Route: 048
  4. SPIRONOLACTONE [Suspect]
     Active Substance: SPIRONOLACTONE
     Indication: Product used for unknown indication
     Dosage: 50 MG, QD 0.5-0-0-0
     Route: 048
  5. EMPAGLIFLOZIN [Concomitant]
     Active Substance: EMPAGLIFLOZIN
     Indication: Product used for unknown indication
     Dosage: 10 MG, QD (1-0-0-0)
     Route: 048
  6. METOPROLOL [Concomitant]
     Active Substance: METOPROLOL
     Indication: Product used for unknown indication
     Dosage: 95 MG, QD (1-0-0-0)
     Route: 048
  7. TORSEMIDE [Concomitant]
     Active Substance: TORSEMIDE
     Indication: Product used for unknown indication
     Dosage: 5 MG, QD (1-0-0-0)
     Route: 065
  8. PANTOPRAZOLE SODIUM [Concomitant]
     Active Substance: PANTOPRAZOLE SODIUM
     Indication: Product used for unknown indication
     Dosage: 40 MG, QD (1-0-0-0)
     Route: 048
  9. CLOPIDOGREL [Concomitant]
     Active Substance: CLOPIDOGREL BISULFATE
     Indication: Product used for unknown indication
     Dosage: 75 MG, QD (1-0-0-0)
     Route: 048

REACTIONS (6)
  - Condition aggravated [Unknown]
  - Cough [Unknown]
  - Dyspnoea [Unknown]
  - Hyperkalaemia [Unknown]
  - Acute kidney injury [Unknown]
  - Infection [Unknown]
